FAERS Safety Report 24323639 (Version 1)
Quarter: 2024Q3

REPORT INFORMATION
  Report Type: Spontaneous
  Country: CN (occurrence: CN)
  Receive Date: 20240916
  Receipt Date: 20240916
  Transmission Date: 20241017
  Serious: Yes (Life-Threatening)
  Sender: BAYER
  Company Number: CN-BAYER-2024A131158

PATIENT
  Age: 50 Year
  Sex: Female
  Weight: 50 kg

DRUGS (2)
  1. GADOBUTROL [Suspect]
     Active Substance: GADOBUTROL
     Indication: Magnetic resonance imaging
     Dosage: 5 ML, ONCE
     Route: 042
     Dates: start: 20240815, end: 20240815
  2. GADOBUTROL [Suspect]
     Active Substance: GADOBUTROL
     Indication: Spinal osteoarthritis

REACTIONS (5)
  - Contrast media allergy [None]
  - Dyspnoea [None]
  - Tachypnoea [None]
  - Palpitations [None]
  - Circumoral oedema [None]

NARRATIVE: CASE EVENT DATE: 20240815
